FAERS Safety Report 6838763-8 (Version None)
Quarter: 2010Q3

REPORT INFORMATION
  Report Type: 
  Country: None (occurrence: None)
  Receive Date: 20100713
  Receipt Date: 20070613
  Transmission Date: 20110219
  Serious: No
  Sender: FDA-Public Use
  Company Number: US-PFIZER INC-2007038613

PATIENT
  Sex: Male
  Weight: 95.3 kg

DRUGS (15)
  1. CHANTIX [Suspect]
     Indication: SMOKING CESSATION THERAPY
     Dates: start: 20070401
  2. CORTISONE [Suspect]
     Indication: SINUSITIS
     Dates: start: 20070101, end: 20070101
  3. ANTIBIOTICS [Suspect]
     Indication: SINUSITIS
     Dates: start: 20070101, end: 20070101
  4. COREG [Concomitant]
  5. COZAAR [Concomitant]
  6. ACTOS [Concomitant]
  7. FUROSEMIDE [Concomitant]
  8. SPIRIVA [Concomitant]
  9. POTASSIUM CHLORIDE [Concomitant]
  10. LEXAPRO [Concomitant]
  11. DOXEPIN HCL [Concomitant]
  12. PREVACID [Concomitant]
     Indication: GASTROOESOPHAGEAL REFLUX DISEASE
  13. SIMVASTATIN [Concomitant]
  14. ACETYLSALICYLIC ACID [Concomitant]
  15. MULTI-VITAMINS [Concomitant]

REACTIONS (1)
  - RASH [None]
